FAERS Safety Report 15628945 (Version 7)
Quarter: 2019Q4

REPORT INFORMATION
  Report Type: Spontaneous
  Country: US (occurrence: US)
  Receive Date: 20181116
  Receipt Date: 20191018
  Transmission Date: 20200122
  Serious: Yes (Other)
  Sender: FDA-Public Use
  Company Number: US-PFIZER INC-2018468265

PATIENT
  Age: 72 Year
  Sex: Female
  Weight: 77 kg

DRUGS (3)
  1. IBRANCE [Suspect]
     Active Substance: PALBOCICLIB
     Indication: BREAST CANCER METASTATIC
     Dosage: 125 MG, CYCLIC [D1-21 Q 28 DAYS]
     Route: 048
     Dates: start: 201809, end: 2018
  2. IBRANCE [Suspect]
     Active Substance: PALBOCICLIB
     Dosage: 125 MG, CYCLIC [D1-21 Q 28 DAYS]
     Route: 048
     Dates: start: 20181113
  3. IBRANCE [Suspect]
     Active Substance: PALBOCICLIB
     Dosage: 100 MG, CYCLIC  [D1-21 Q 28 DAYS]
     Route: 048

REACTIONS (16)
  - Blood potassium decreased [Unknown]
  - Nasal neoplasm [Unknown]
  - Chest pain [Unknown]
  - Gastrooesophageal reflux disease [Unknown]
  - Stomatitis [Unknown]
  - Ocular hyperaemia [Unknown]
  - Second primary malignancy [Unknown]
  - Nausea [Not Recovered/Not Resolved]
  - Pain [Unknown]
  - Sensation of foreign body [Unknown]
  - Anxiety [Not Recovered/Not Resolved]
  - Weight decreased [Unknown]
  - Road traffic accident [Unknown]
  - Fatigue [Unknown]
  - Calcinosis [Unknown]
  - Alopecia [Unknown]
